FAERS Safety Report 15532208 (Version 1)
Quarter: 2018Q4

REPORT INFORMATION
  Report Type: Spontaneous
  Country: GB (occurrence: GB)
  Receive Date: 20181019
  Receipt Date: 20181019
  Transmission Date: 20190205
  Serious: Yes (Death, Hospitalization)
  Sender: FDA-Public Use
  Company Number: GB-009507513-1810GBR008096

PATIENT
  Age: 60 Year
  Sex: Male
  Weight: 108 kg

DRUGS (6)
  1. PEMBROLIZUMAB. [Suspect]
     Active Substance: PEMBROLIZUMAB
     Indication: LUNG ADENOCARCINOMA
     Dosage: 200 MG, UNK
     Route: 042
     Dates: start: 20180223, end: 20180315
  2. MORPHINE SULFATE. [Concomitant]
     Active Substance: MORPHINE SULFATE
     Dosage: UNK
  3. CITALOPRAM [Concomitant]
     Active Substance: CITALOPRAM HYDROBROMIDE
     Dosage: UNK
  4. ACETAMINOPHEN. [Concomitant]
     Active Substance: ACETAMINOPHEN
     Dosage: UNK
  5. GAVISCON (ALUMINUM HYDROXIDE (+) CALCIUM CARBONATE (+) SODIUM ALGINATE [Concomitant]
     Active Substance: ALUMINUM HYDROXIDE \CALCIUM CARBONATE\SODIUM ALGINATE\SODIUM BICARBONATE
     Dosage: UNK
  6. DIAZEPAM. [Concomitant]
     Active Substance: DIAZEPAM
     Dosage: UNK

REACTIONS (4)
  - Interstitial lung disease [Fatal]
  - Dyspnoea [Unknown]
  - Malaise [Unknown]
  - Pyrexia [Unknown]
